FAERS Safety Report 6261530-3 (Version None)
Quarter: 2009Q3

REPORT INFORMATION
  Report Type: 
  Country: None (occurrence: None)
  Receive Date: 20090709
  Receipt Date: 20090701
  Transmission Date: 20100115
  Serious: Yes (Other)
  Sender: FDA-Public Use
  Company Number: JP-PFIZER INC-2009236012

PATIENT
  Age: 59 Year

DRUGS (1)
  1. NORVASC [Suspect]
     Dosage: 5 MG, 1X/DAY
     Route: 048
     Dates: start: 20050101

REACTIONS (2)
  - PERIODONTITIS [None]
  - TOOTH LOSS [None]
